FAERS Safety Report 9233821 (Version 1)
Quarter: 2013Q2

REPORT INFORMATION
  Report Type: Spontaneous
  Country: US (occurrence: US)
  Receive Date: 20130416
  Receipt Date: 20130416
  Transmission Date: 20140414
  Serious: No
  Sender: FDA-Public Use
  Company Number: US-BANPHARM-20120048

PATIENT
  Age: 83 Year
  Sex: Male
  Weight: 110.66 kg

DRUGS (17)
  1. ALEVE LIQUID GELS 220 MG [Suspect]
     Indication: ARTHRITIS
     Dosage: 1 DF, BID, QOD,
     Route: 048
     Dates: start: 20120508, end: 20120712
  2. ALEVE CAPLET [Suspect]
     Dosage: 1 DF, BID, QOD,
     Route: 048
     Dates: start: 20120508
  3. HIGH BLOOD PRESURE MEDICATION [Concomitant]
     Route: 048
  4. WATER PILL [Concomitant]
     Route: 048
  5. LOW DOSE ASPIRIN [Concomitant]
     Route: 048
  6. ATACAND [Concomitant]
  7. BENADRYL [Concomitant]
  8. FERREX [Concomitant]
  9. KLOR-CON [Concomitant]
  10. LASIX [Concomitant]
  11. LOPRESSOR [Concomitant]
  12. LOVAZA [Concomitant]
  13. LEVOTHYROID [Concomitant]
  14. PLENDIL [Concomitant]
  15. PRILOSEC [Concomitant]
  16. LIPITOR [Concomitant]
  17. NOVOLOG 70/30 INSULIN [Concomitant]

REACTIONS (2)
  - Rash [Recovering/Resolving]
  - Urticaria [Recovering/Resolving]
